FAERS Safety Report 24024043 (Version 2)
Quarter: 2024Q2

REPORT INFORMATION
  Report Type: Spontaneous
  Country: FR (occurrence: FR)
  Receive Date: 20240627
  Receipt Date: 20240628
  Transmission Date: 20240716
  Serious: No
  Sender: FDA-Public Use
  Company Number: FR-ROCHE-3465990

PATIENT
  Sex: Female

DRUGS (1)
  1. PHESGO [Suspect]
     Active Substance: HYALURONIDASE-ZZXF\PERTUZUMAB\TRASTUZUMAB
     Indication: Breast cancer metastatic
     Route: 065

REACTIONS (3)
  - Paraesthesia [Unknown]
  - Burning sensation [Unknown]
  - Pruritus [Unknown]
